FAERS Safety Report 4833051-3 (Version None)
Quarter: 2005Q4

REPORT INFORMATION
  Report Type: 
  Country: None (occurrence: None)
  Receive Date: 20051117
  Receipt Date: 20051104
  Transmission Date: 20060501
  Serious: Yes (Hospitalization)
  Sender: FDA-Public Use
  Company Number: 2005BI012589

PATIENT
  Age: 48 Year
  Sex: Female
  Weight: 96.6162 kg

DRUGS (7)
  1. AVONEX [Suspect]
     Indication: MULTIPLE SCLEROSIS
     Dosage: 30 UG;QW; IM
     Route: 030
     Dates: start: 20000101, end: 20040101
  2. AVONEX [Suspect]
     Indication: MULTIPLE SCLEROSIS
     Dosage: 30 UG; QW; IM
     Route: 030
     Dates: start: 20040101
  3. ALPRAZOLAM [Concomitant]
  4. ZOLOFT [Concomitant]
  5. SINEMET [Concomitant]
  6. TOPAMAX [Concomitant]
  7. AVAPRO [Concomitant]

REACTIONS (8)
  - CONSTIPATION [None]
  - ENDOMETRIAL CANCER [None]
  - HYPERTENSION [None]
  - LEIOMYOMA [None]
  - PROCEDURAL PAIN [None]
  - RESTLESS LEGS SYNDROME [None]
  - URINARY TRACT INFECTION [None]
  - UTERINE CANCER [None]
